FAERS Safety Report 6145519-0 (Version None)
Quarter: 2009Q2

REPORT INFORMATION
  Report Type: 
  Country: None (occurrence: None)
  Receive Date: 20090402
  Receipt Date: 20090319
  Transmission Date: 20091009
  Serious: Yes (Hospitalization, Other)
  Sender: FDA-Public Use
  Company Number: LTI2008A00311

PATIENT
  Sex: Male

DRUGS (3)
  1. ACTOPLUS MET [Suspect]
     Indication: TYPE 2 DIABETES MELLITUS
     Dosage: 3 TAB. (1 TAB., 3 IN 1 D) ORAL; 2 TAB. (1 TAB., 2 IN 1 D) ORAL
     Route: 048
     Dates: end: 20081101
  2. ACTOPLUS MET [Suspect]
     Indication: TYPE 2 DIABETES MELLITUS
     Dosage: 3 TAB. (1 TAB., 3 IN 1 D) ORAL; 2 TAB. (1 TAB., 2 IN 1 D) ORAL
     Route: 048
     Dates: start: 20081101
  3. COKENZEN 16/12.5 (CANDESARTAN CILEXETIL, HYDROCHLOROTHIAZIDE) [Concomitant]

REACTIONS (4)
  - BRONCHIAL DISORDER [None]
  - DYSPNOEA [None]
  - SUPERINFECTION [None]
  - WEIGHT INCREASED [None]
